FAERS Safety Report 23659717 (Version 1)
Quarter: 2024Q1

REPORT INFORMATION
  Report Type: Spontaneous
  Country: CA (occurrence: CA)
  Receive Date: 20240321
  Receipt Date: 20240321
  Transmission Date: 20240410
  Serious: Yes (Other)
  Sender: FDA-Public Use
  Company Number: CA-PFIZER INC-202201192774

PATIENT
  Age: 63 Year
  Sex: Female

DRUGS (2)
  1. ABRILADA [Suspect]
     Active Substance: ADALIMUMAB-AFZB
     Indication: Hidradenitis
     Dosage: 40 MG, WEEKLY
     Route: 058
     Dates: start: 20220315
  2. ABRILADA [Suspect]
     Active Substance: ADALIMUMAB-AFZB
     Dosage: 40 MG, WEEKLY
     Route: 058
     Dates: start: 20230124, end: 20231113

REACTIONS (10)
  - Skin bacterial infection [Unknown]
  - Carotid artery disease [Unknown]
  - Therapeutic product effect incomplete [Unknown]
  - Rash [Recovered/Resolved]
  - Dry mouth [Recovering/Resolving]
  - Dry eye [Recovering/Resolving]
  - Dry skin [Recovered/Resolved]
  - Pharyngitis [Unknown]
  - Nodule [Not Recovered/Not Resolved]
  - Bloody discharge [Not Recovered/Not Resolved]

NARRATIVE: CASE EVENT DATE: 20230101
